FAERS Safety Report 5697928-1 (Version None)
Quarter: 2008Q2

REPORT INFORMATION
  Report Type: 
  Country: None (occurrence: None)
  Receive Date: 20080408
  Receipt Date: 20080327
  Transmission Date: 20081010
  Serious: Yes (Other)
  Sender: FDA-Public Use
  Company Number: ES-WYE-H03493608

PATIENT
  Age: 66 Year
  Sex: Female

DRUGS (2)
  1. TRANGOREX [Suspect]
     Indication: ATRIAL FIBRILLATION
     Dosage: 200 MG (FREQUENCY UNSPECIFIED)
     Route: 048
     Dates: start: 20050422, end: 20070822
  2. SINTROM [Concomitant]
     Dosage: UNSPECIFIED
     Route: 048
     Dates: start: 20050831

REACTIONS (1)
  - PAIN IN EXTREMITY [None]
